FAERS Safety Report 7892521-4 (Version None)
Quarter: 2011Q4

REPORT INFORMATION
  Report Type: 
  Country: None (occurrence: None)
  Receive Date: 20111104
  Receipt Date: 20111027
  Transmission Date: 20120403
  Serious: Yes (Death, Other)
  Sender: FDA-Public Use
  Company Number: US-BAYER-201011403NA

PATIENT
  Age: 58 Year
  Sex: Male
  Weight: 90.703 kg

DRUGS (42)
  1. CELEBREX [Concomitant]
     Indication: PRODUCT USED FOR UNKNOWN INDICATION
  2. ACETYLSALICYLIC ACID SRT [Concomitant]
     Dosage: 81 MG, QD
     Route: 048
  3. TRASYLOL [Suspect]
     Indication: PERICARDIAL REPAIR
  4. LISINOPRIL [Concomitant]
     Indication: HYPERTENSION
  5. NAPROXEN [Concomitant]
     Indication: PRODUCT USED FOR UNKNOWN INDICATION
  6. SERTRALINE HYDROCHLORIDE [Concomitant]
  7. AMBIEN [Concomitant]
  8. METOPROLOL [Concomitant]
     Dosage: 25 MG, QD
     Route: 048
     Dates: start: 20041114
  9. GLIPIZIDE [Concomitant]
  10. TRASYLOL [Suspect]
     Indication: AORTIC VALVE REPLACEMENT
     Dosage: 200 CC LOADING DOSE
     Route: 042
     Dates: start: 20041119
  11. CLOMIPRAMINE HCL [Concomitant]
     Dosage: 25 MG, QD
     Route: 048
  12. NPH INSULIN [Concomitant]
     Dosage: 10 UNITS AT BEAKFAST
     Route: 058
  13. METFORMIN HCL [Concomitant]
     Dosage: 850 MG, TID
     Route: 048
  14. VANCOMYCIN [Concomitant]
     Dosage: 1 G, UNK
     Route: 042
     Dates: start: 20041119, end: 20041119
  15. LOVENOX [Concomitant]
     Dosage: UNK UNK, BID
     Route: 058
     Dates: start: 20041114
  16. HYDROCHLOROTHIAZIDE [Concomitant]
     Dosage: 25 MG, QD
     Route: 048
  17. COUMADIN [Concomitant]
  18. HEPARIN [Concomitant]
     Dosage: UNK
     Route: 042
     Dates: start: 20041119, end: 20041119
  19. IBUPROFEN [Concomitant]
     Indication: PRODUCT USED FOR UNKNOWN INDICATION
  20. INSULIN [Concomitant]
     Dosage: DRIP
  21. MIDAZOLAM [Concomitant]
     Dosage: UNK
     Dates: start: 20041119, end: 20041119
  22. LEVOFLOXACIN [Concomitant]
     Dosage: 250 MG, QD
     Route: 048
  23. CITRULLINE [Concomitant]
     Dosage: 100 MG, QD
     Route: 048
  24. NIPRIDE [Concomitant]
  25. FENTANYL [Concomitant]
     Dosage: UNK
     Dates: start: 20041119, end: 20041119
  26. SCOPOLAMINE [Concomitant]
     Dosage: UNK
     Dates: start: 20041119, end: 20041119
  27. TRASYLOL [Suspect]
     Indication: ABSCESS DRAINAGE
     Dosage: 50 CC/HR INFUSION
     Route: 042
     Dates: start: 20041119, end: 20041119
  28. MOTRIN [Concomitant]
     Indication: PRODUCT USED FOR UNKNOWN INDICATION
  29. ANAPROX [Concomitant]
     Indication: PRODUCT USED FOR UNKNOWN INDICATION
  30. LASIX [Concomitant]
     Dosage: 40 MG EVERY 8 HOURS
     Route: 042
  31. ATENOLOL [Concomitant]
     Dosage: 50 MG, QD
     Route: 048
  32. AMPICILLIN [Concomitant]
  33. ACETAMINOPHEN [Concomitant]
  34. ZINACEF [Concomitant]
     Dosage: 51 G, UNK
     Route: 042
     Dates: start: 20041119, end: 20041119
  35. PROTAMINE SULFATE [Concomitant]
     Dosage: UNK
     Dates: start: 20041119, end: 20041119
  36. NATRECOR [Concomitant]
     Indication: CARDIAC FAILURE CONGESTIVE
     Dosage: UNK
     Dates: start: 20041114, end: 20041116
  37. LASIX [Concomitant]
     Dosage: 80 MG, QD
     Route: 048
  38. NPH INSULIN [Concomitant]
     Dosage: 20 UNITS AT BEDTIME
     Route: 058
  39. ALBUTEROL [Concomitant]
  40. PEPCID [Concomitant]
  41. PROTONIX [Concomitant]
  42. PROTONIX [Concomitant]
     Dosage: 40 MG, QD
     Route: 042
     Dates: start: 20041114

REACTIONS (14)
  - RENAL FAILURE [None]
  - RENAL INJURY [None]
  - DEPRESSION [None]
  - DEATH [None]
  - PAIN [None]
  - ANHEDONIA [None]
  - UNEVALUABLE EVENT [None]
  - ORGAN FAILURE [None]
  - ANXIETY [None]
  - CEREBROVASCULAR ACCIDENT [None]
  - FEAR [None]
  - INJURY [None]
  - RENAL IMPAIRMENT [None]
  - CARDIAC DISORDER [None]
